FAERS Safety Report 10945641 (Version 2)
Quarter: 2020Q3

REPORT INFORMATION
  Report Type: Spontaneous
  Country: US (occurrence: US)
  Receive Date: 20150323
  Receipt Date: 20200731
  Transmission Date: 20201102
  Serious: Yes (Death, Hospitalization, Other)
  Sender: FDA-Public Use
  Company Number: US-PFIZER INC-2015098960

PATIENT
  Age: 83 Year
  Sex: Male
  Weight: 75 kg

DRUGS (4)
  1. METFORMIN [Concomitant]
     Active Substance: METFORMIN HYDROCHLORIDE
     Dosage: UNK (TOOK FOR MANY YEARS)
  2. INSULIN [Concomitant]
     Active Substance: INSULIN NOS
     Dosage: UNK
     Dates: start: 201302
  3. LYRICA [Suspect]
     Active Substance: PREGABALIN
     Indication: PAIN IN EXTREMITY
     Dosage: UNK
     Dates: start: 201310, end: 20140601
  4. VITAMIN B12 [Concomitant]
     Active Substance: CYANOCOBALAMIN
     Dosage: UNK
     Dates: start: 201303, end: 20140601

REACTIONS (7)
  - Weight decreased [Unknown]
  - Decubitus ulcer [Unknown]
  - Overdose [Fatal]
  - Cardiac arrest [Fatal]
  - Pneumonia [Unknown]
  - Dyspnoea [Unknown]
  - Renal disorder [Unknown]

NARRATIVE: CASE EVENT DATE: 201310
